FAERS Safety Report 8559604-7 (Version None)
Quarter: 2012Q2

REPORT INFORMATION
  Report Type: 
  Country: None (occurrence: None)
  Receive Date: 20120418
  Receipt Date: 20100204
  Transmission Date: 20120825
  Serious: Yes (Other)
  Sender: FDA-Public Use
  Company Number: PHEH2010US02093

PATIENT

DRUGS (2)
  1. MACROBID [Suspect]
  2. DIOVAN [Suspect]

REACTIONS (1)
  - ANGIOEDEMA [None]
